FAERS Safety Report 7787214-8 (Version None)
Quarter: 2011Q3

REPORT INFORMATION
  Report Type: 
  Country: None (occurrence: None)
  Receive Date: 20110927
  Receipt Date: 20110919
  Transmission Date: 20111222
  Serious: Yes (Disabling)
  Sender: FDA-Public Use
  Company Number: OSCN-NO-0901S-0026

PATIENT
  Age: 54 Year
  Sex: Female

DRUGS (11)
  1. HALOPERIDOL (SERENASE) (HALOPERIDOL) [Concomitant]
  2. OMNISCAN [Suspect]
     Indication: PRODUCT USED FOR UNKNOWN INDICATION
     Dosage: 15 ML, SINGLE DOSE, NITRAVENOUS
     Route: 042
     Dates: start: 20020115, end: 20020115
  3. METOCLOPRAMIDE [Concomitant]
  4. MIRTAZAPINE (REMERON) (MIRTAZAPINE) [Concomitant]
  5. EMPERAL (METOCLOPRAMIDE HYDROCHLORIDE) [Concomitant]
  6. MAGNEVIST [Suspect]
     Indication: PRODUCT USED FOR UNKNOWN INDICATION
     Dosage: 10 ML, SINGLE DOSE, INTRA-ARTICULAR ; SINGLE DOSE ; SNIGLE DOSE
     Route: 014
     Dates: start: 20050626, end: 20060626
  7. MAGNEVIST [Suspect]
     Indication: PRODUCT USED FOR UNKNOWN INDICATION
     Dosage: 10 ML, SINGLE DOSE, INTRA-ARTICULAR ; SINGLE DOSE ; SNIGLE DOSE
     Route: 014
     Dates: start: 20010101, end: 20010101
  8. MAGNEVIST [Suspect]
     Indication: PRODUCT USED FOR UNKNOWN INDICATION
     Dosage: 10 ML, SINGLE DOSE, INTRA-ARTICULAR ; SINGLE DOSE ; SNIGLE DOSE
     Route: 014
     Dates: start: 20010101, end: 20010101
  9. GADOLINIUM (UNSPECIFIED) (GADOLINIUM) [Suspect]
     Indication: PRODUCT USED FOR UNKNOWN INDICATION
     Dosage: SINGLE DOSE
     Dates: start: 20020719, end: 20020719
  10. QUININE SULFATE [Concomitant]
  11. LACTULOSE [Concomitant]

REACTIONS (7)
  - MITRAL VALVE CALCIFICATION [None]
  - MITRAL VALVE INCOMPETENCE [None]
  - AORTIC VALVE INCOMPETENCE [None]
  - PULMONARY FUNCTION TEST ABNORMAL [None]
  - ABASIA [None]
  - NEPHROGENIC SYSTEMIC FIBROSIS [None]
  - AORTIC VALVE STENOSIS [None]
